FAERS Safety Report 20939329 (Version 2)
Quarter: 2023Q1

REPORT INFORMATION
  Report Type: Spontaneous
  Country: US (occurrence: US)
  Receive Date: 20220609
  Receipt Date: 20230330
  Transmission Date: 20230418
  Serious: No
  Sender: FDA-Public Use
  Company Number: US-JUBILANT PHARMA LTD-2022US000235

PATIENT

DRUGS (1)
  1. DRAXIMAGE MAA [Suspect]
     Active Substance: TECHNETIUM TC-99M ALBUMIN AGGREGATED
     Indication: Ventilation/perfusion scan
     Dosage: 4.8 MCI, SINGLE DOSE
     Dates: start: 20220419, end: 20220419

REACTIONS (2)
  - Drug ineffective [Unknown]
  - Product preparation error [Unknown]
